FAERS Safety Report 13766274 (Version 1)
Quarter: 2017Q3

REPORT INFORMATION
  Report Type: Report from Study
  Country: None (occurrence: IN)
  Receive Date: 20170719
  Receipt Date: 20170719
  Transmission Date: 20171127
  Serious: Yes (Disabling)
  Sender: FDA-Public Use
  Company Number: IN-ABBVIE-17P-078-2042343-00

PATIENT
  Age: 42 Year
  Sex: Male

DRUGS (3)
  1. THYRONORM [Suspect]
     Active Substance: LEVOTHYROXINE
     Route: 048
  2. THYRONORM [Suspect]
     Active Substance: LEVOTHYROXINE
     Route: 048
  3. THYRONORM [Suspect]
     Active Substance: LEVOTHYROXINE
     Indication: HYPOTHYROIDISM
     Route: 048
     Dates: start: 20170630

REACTIONS (3)
  - Blindness [Unknown]
  - Peripheral swelling [Unknown]
  - Peripheral swelling [Unknown]

NARRATIVE: CASE EVENT DATE: 20170630
